FAERS Safety Report 5230127-6 (Version None)
Quarter: 2007Q1

REPORT INFORMATION
  Report Type: 
  Country: None (occurrence: None)
  Receive Date: 20070206
  Receipt Date: 20060727
  Transmission Date: 20070707
  Serious: No
  Sender: FDA-Public Use
  Company Number: US-GLAXOSMITHKLINE-A0613773A

PATIENT
  Age: 48 Year
  Sex: Male

DRUGS (4)
  1. PAXIL CR [Suspect]
     Indication: DEPRESSION
     Dosage: 37.5MG PER DAY
     Route: 048
     Dates: end: 20060601
  2. PAXIL [Suspect]
  3. PAXIL [Suspect]
  4. LORAZEPAM [Concomitant]

REACTIONS (5)
  - ANXIETY [None]
  - DRUG WITHDRAWAL SYNDROME [None]
  - HOT FLUSH [None]
  - NIGHT SWEATS [None]
  - PANIC ATTACK [None]
